FAERS Safety Report 23942257 (Version 1)
Quarter: 2024Q2

REPORT INFORMATION
  Report Type: Spontaneous
  Country: US (occurrence: None)
  Receive Date: 20240604
  Receipt Date: 20240604
  Transmission Date: 20240716
  Serious: Yes (Hospitalization)
  Sender: FDA-Public Use
  Company Number: None

PATIENT
  Sex: Female

DRUGS (4)
  1. TADALAFIL [Suspect]
     Active Substance: TADALAFIL
     Indication: Pulmonary arterial hypertension
     Dosage: FREQUENCY : DAILY;?
     Route: 048
     Dates: start: 202204
  2. AMBRISENTAN [Concomitant]
     Active Substance: AMBRISENTAN
  3. UPTRAVI [Concomitant]
     Active Substance: SELEXIPAG
  4. LETAIRIS [Concomitant]

REACTIONS (1)
  - Pneumonia [None]
